FAERS Safety Report 21259901 (Version 1)
Quarter: 2022Q3

REPORT INFORMATION
  Report Type: Spontaneous
  Country: US (occurrence: US)
  Receive Date: 20220826
  Receipt Date: 20220826
  Transmission Date: 20221026
  Serious: No
  Sender: FDA-Public Use
  Company Number: US-PFIZER INC-PV202200050223

PATIENT
  Age: 53 Year
  Sex: Female

DRUGS (4)
  1. IBRANCE [Interacting]
     Active Substance: PALBOCICLIB
     Dosage: UNK, CYCLIC (DAILY FOR 21 DAYS AND THEN HOLD OFF ON THE MEDICATION FOR 1 WEEKS)
  2. IBRANCE [Interacting]
     Active Substance: PALBOCICLIB
     Dosage: UNK, CYCLIC (DAILY FOR 21 DAYS AND THEN HOLD OFF ON THE MEDICATION FOR 2 WEEKS)
  3. PREVACID [Interacting]
     Active Substance: LANSOPRAZOLE
     Dosage: UNK
  4. LETROZOLE [Interacting]
     Active Substance: LETROZOLE
     Dosage: UNK

REACTIONS (5)
  - Therapeutic product effect decreased [Unknown]
  - Drug interaction [Unknown]
  - Intentional product misuse [Unknown]
  - White blood cell count decreased [Unknown]
  - Arthralgia [Not Recovered/Not Resolved]
